FAERS Safety Report 5908538-2 (Version None)
Quarter: 2008Q4

REPORT INFORMATION
  Report Type: 
  Country: None (occurrence: None)
  Receive Date: 20081006
  Receipt Date: 20080925
  Transmission Date: 20090506
  Serious: Yes (Other)
  Sender: FDA-Public Use
  Company Number: GB-JNJFOC-20080906179

PATIENT
  Sex: Male
  Weight: 110 kg

DRUGS (6)
  1. REMICADE [Suspect]
     Indication: RHEUMATOID ARTHRITIS
     Route: 042
  2. METHOTREXATE SODIUM [Concomitant]
  3. PREDNISOLONE [Concomitant]
  4. CO-DYDRAMOL [Concomitant]
  5. MOBIC [Concomitant]
  6. ZOCOR [Concomitant]

REACTIONS (1)
  - PROSTATE CANCER [None]
